FAERS Safety Report 6490026-9 (Version None)
Quarter: 2009Q4

REPORT INFORMATION
  Report Type: 
  Country: None (occurrence: None)
  Receive Date: 20091210
  Receipt Date: 20091210
  Transmission Date: 20100525
  Serious: No
  Sender: FDA-Public Use
  Company Number: None

PATIENT

DRUGS (1)
  1. ZOLPIDEM [Suspect]
     Indication: ANXIETY
     Dosage: 10MG QHS PO
     Route: 048
     Dates: start: 20090601

REACTIONS (2)
  - DRUG EFFECT DECREASED [None]
  - TERMINAL INSOMNIA [None]
